FAERS Safety Report 20514601 (Version 2)
Quarter: 2022Q1

REPORT INFORMATION
  Report Type: Spontaneous
  Country: US (occurrence: US)
  Receive Date: 20220224
  Receipt Date: 20220311
  Transmission Date: 20220424
  Serious: Yes (Death, Hospitalization)
  Sender: FDA-Public Use
  Company Number: US-TEVA-2022-US-2009208

PATIENT
  Age: 27 Year
  Sex: Male

DRUGS (6)
  1. MORPHINE [Suspect]
     Active Substance: MORPHINE
     Indication: Complex regional pain syndrome
     Dosage: INTRAVENOUS INJECTION OF ORAL OPIOID TABLETS
     Route: 042
  2. MORPHINE [Suspect]
     Active Substance: MORPHINE
     Indication: Drug abuse
  3. HYDROMORPHONE [Suspect]
     Active Substance: HYDROMORPHONE
     Indication: Complex regional pain syndrome
     Dosage: INTRAVENOUS INJECTION OF ORAL OPIOID TABLETS
     Route: 042
  4. HYDROMORPHONE [Suspect]
     Active Substance: HYDROMORPHONE
     Indication: Drug abuse
  5. HYDROCODONE [Suspect]
     Active Substance: HYDROCODONE
     Indication: Complex regional pain syndrome
     Dosage: INTRAVENOUS INJECTION OF ORAL OPIOID TABLETS
     Route: 042
  6. HYDROCODONE [Suspect]
     Active Substance: HYDROCODONE
     Indication: Drug abuse

REACTIONS (6)
  - Vasculitis necrotising [Fatal]
  - Reaction to excipient [Fatal]
  - Accidental overdose [Fatal]
  - Intentional product use issue [Fatal]
  - Drug abuse [Fatal]
  - Compartment syndrome [Recovered/Resolved]
